FAERS Safety Report 19897940 (Version 4)
Quarter: 2022Q3

REPORT INFORMATION
  Report Type: Report from Study
  Country: CO (occurrence: CO)
  Receive Date: 20210930
  Receipt Date: 20220926
  Transmission Date: 20221026
  Serious: Yes (Life-Threatening, Hospitalization, Other)
  Sender: FDA-Public Use
  Company Number: CO-BRISTOL-MYERS SQUIBB COMPANY-BMS-2020-105042

PATIENT
  Age: 63 Year
  Sex: Male
  Weight: 95 kg

DRUGS (3)
  1. NIVOLUMAB [Suspect]
     Active Substance: NIVOLUMAB
     Indication: Malignant melanoma
     Dosage: 564 MILLIGRAM, Q4WK?564 MG/ML
     Route: 042
     Dates: start: 20200604
  2. NIVOLUMAB [Suspect]
     Active Substance: NIVOLUMAB
     Indication: Renal cancer
  3. LEVETIRACETAM [Concomitant]
     Active Substance: LEVETIRACETAM
     Indication: Partial seizures
     Dosage: 500 MILLIGRAM EVERY 12 HOURS
     Route: 048
     Dates: start: 20201228

REACTIONS (8)
  - Malignant neoplasm progression [Unknown]
  - Skin lesion [Recovering/Resolving]
  - Fall [Recovering/Resolving]
  - Dislocation of vertebra [Recovering/Resolving]
  - Partial seizures [Recovered/Resolved]
  - Hypersensitivity [Recovering/Resolving]
  - Off label use [Unknown]
  - Diabetes mellitus [Recovering/Resolving]

NARRATIVE: CASE EVENT DATE: 20201201
